FAERS Safety Report 13968765 (Version 2)
Quarter: 2017Q4

REPORT INFORMATION
  Report Type: Report from Study
  Country: US (occurrence: US)
  Receive Date: 20170914
  Receipt Date: 20171025
  Transmission Date: 20180320
  Serious: No
  Sender: FDA-Public Use
  Company Number: US-009507513-1709USA005585

PATIENT
  Age: 42 Year
  Sex: Female

DRUGS (1)
  1. BELSOMRA [Suspect]
     Active Substance: SUVOREXANT
     Indication: INSOMNIA RELATED TO ANOTHER MENTAL CONDITION
     Dosage: ONE TABLET BEFORE BEDTIME
     Route: 048
     Dates: start: 20170905

REACTIONS (2)
  - Drug dose omission [Unknown]
  - Middle insomnia [Unknown]

NARRATIVE: CASE EVENT DATE: 20170910
